FAERS Safety Report 4937413-5 (Version None)
Quarter: 2006Q1

REPORT INFORMATION
  Report Type: 
  Country: None (occurrence: None)
  Receive Date: 20060302
  Receipt Date: 20060220
  Transmission Date: 20060701
  Serious: Yes (Life-Threatening, Hospitalization)
  Sender: FDA-Public Use
  Company Number: ES200602004180

PATIENT
  Age: 71 Year
  Sex: Male

DRUGS (1)
  1. ZYPREXA [Suspect]
     Dosage: ORAL
     Route: 048
     Dates: end: 20041226

REACTIONS (2)
  - ENCEPHALOPATHY [None]
  - HEPATOCELLULAR DAMAGE [None]
